FAERS Safety Report 13288096 (Version 2)
Quarter: 2017Q2

REPORT INFORMATION
  Report Type: Spontaneous
  Country: US (occurrence: US)
  Receive Date: 20170302
  Receipt Date: 20170424
  Transmission Date: 20170830
  Serious: Yes (Hospitalization)
  Sender: FDA-Public Use
  Company Number: US-MALLINCKRODT-T201700636

PATIENT
  Age: 63 Year
  Sex: Female

DRUGS (1)
  1. H.P. ACTHAR [Suspect]
     Active Substance: CORTICOTROPIN
     Indication: POLYMYOSITIS
     Dosage: 80 UNITS, TWICE WEEKLY
     Route: 058
     Dates: start: 20160113

REACTIONS (1)
  - Polymyositis [Unknown]

NARRATIVE: CASE EVENT DATE: 20170131
